FAERS Safety Report 9885491 (Version 1)
Quarter: 2014Q1

REPORT INFORMATION
  Report Type: Spontaneous
  Country: US (occurrence: US)
  Receive Date: 20140210
  Receipt Date: 20140210
  Transmission Date: 20141002
  Serious: Yes (Other)
  Sender: FDA-Public Use
  Company Number: US-PFIZER INC-2014035866

PATIENT
  Sex: Female

DRUGS (1)
  1. CHANTIX [Suspect]
     Dosage: UNK

REACTIONS (5)
  - Heart rate increased [Unknown]
  - Dyspnoea [Unknown]
  - Dizziness [Unknown]
  - Feeling abnormal [Unknown]
  - Poor quality sleep [Unknown]
